FAERS Safety Report 8344215-9 (Version None)
Quarter: 2012Q2

REPORT INFORMATION
  Report Type: 
  Country: None (occurrence: None)
  Receive Date: 20120508
  Receipt Date: 20080508
  Transmission Date: 20120825
  Serious: No
  Sender: FDA-Public Use
  Company Number: US-TEVA-US023493

PATIENT

DRUGS (1)
  1. TREANDA [Suspect]
     Dosage: RECEIVED ONE CYCLE
     Route: 042
     Dates: start: 20080101, end: 20080101

REACTIONS (2)
  - NEUTROPENIA [None]
  - PLATELET COUNT DECREASED [None]
